FAERS Safety Report 10966736 (Version 3)
Quarter: 2015Q2

REPORT INFORMATION
  Report Type: Spontaneous
  Country: US (occurrence: US)
  Receive Date: 20150330
  Receipt Date: 20150514
  Transmission Date: 20150821
  Serious: Yes (Hospitalization, Other)
  Sender: FDA-Public Use
  Company Number: US-AMGEN-USASP2015028659

PATIENT
  Age: 73 Year
  Sex: Female

DRUGS (1)
  1. ENBREL [Suspect]
     Active Substance: ETANERCEPT
     Indication: RHEUMATOID ARTHRITIS
     Dosage: 50 MG, QWK
     Route: 065
     Dates: start: 1997, end: 20150331

REACTIONS (12)
  - Foot operation [Recovered/Resolved]
  - Musculoskeletal pain [Recovered/Resolved]
  - Hearing impaired [Not Recovered/Not Resolved]
  - Bacterial infection [Recovered/Resolved]
  - Skin ulcer [Not Recovered/Not Resolved]
  - Bone disorder [Recovered/Resolved]
  - Arthralgia [Not Recovered/Not Resolved]
  - Visual impairment [Not Recovered/Not Resolved]
  - Osteomyelitis [Recovered/Resolved]
  - Pain in extremity [Recovered/Resolved]
  - Foot deformity [Recovered/Resolved]
  - Nodule [Not Recovered/Not Resolved]

NARRATIVE: CASE EVENT DATE: 2014
